FAERS Safety Report 7241460-0 (Version None)
Quarter: 2011Q1

REPORT INFORMATION
  Report Type: 
  Country: None (occurrence: None)
  Receive Date: 20110124
  Receipt Date: 20110114
  Transmission Date: 20110831
  Serious: Yes (Other)
  Sender: FDA-Public Use
  Company Number: NL-ABBOTT-11P-114-0697722-00

PATIENT
  Age: 28 Year
  Sex: Male

DRUGS (5)
  1. PREDNISONE [Suspect]
     Indication: ACUTE FEBRILE NEUTROPHILIC DERMATOSIS
     Dosage: 1MG/KG
  2. PREDNISONE [Suspect]
     Dosage: 30 MG/DAY
  3. AZATHIOPRINE [Suspect]
     Indication: PRODUCT USED FOR UNKNOWN INDICATION
  4. CYCLOSPORINE [Suspect]
  5. CYCLOSPORINE [Suspect]
     Indication: PRODUCT USED FOR UNKNOWN INDICATION

REACTIONS (4)
  - RENAL IMPAIRMENT [None]
  - BONE MARROW FAILURE [None]
  - OSTEONECROSIS [None]
  - ACUTE FEBRILE NEUTROPHILIC DERMATOSIS [None]
